FAERS Safety Report 14277830 (Version 10)
Quarter: 2019Q4

REPORT INFORMATION
  Report Type: Spontaneous
  Country: NL (occurrence: NL)
  Receive Date: 20171212
  Receipt Date: 20191212
  Transmission Date: 20200122
  Serious: Yes (Other)
  Sender: FDA-Public Use
  Company Number: NL-MYLANLABS-2017M1078532

PATIENT
  Age: 67 Year
  Sex: Male

DRUGS (19)
  1. MIRTAZAPINE. [Suspect]
     Active Substance: MIRTAZAPINE
     Indication: SEDATION
     Dosage: 30 MILLIGRAM
  2. CARBIDOPA/ENTACAPONE/LEVODOPA [Suspect]
     Active Substance: CARBIDOPA\ENTACAPONE\LEVODOPA
     Indication: PARKINSON^S DISEASE
     Dosage: 100 MILLIGRAM
     Route: 016
  3. AMANTADINE HYDROCHLORIDE. [Suspect]
     Active Substance: AMANTADINE HYDROCHLORIDE
     Indication: PARKINSON^S DISEASE
     Dosage: 200 MILLIGRAM
  4. MADOPAR [Suspect]
     Active Substance: BENSERAZIDE HYDROCHLORIDE\LEVODOPA
     Indication: PARKINSON^S DISEASE
     Dosage: 250 MILLIGRAM
  5. REMERON [Suspect]
     Active Substance: MIRTAZAPINE
     Indication: SEDATION
     Dosage: 30 MILLIGRAM
  6. CLONAZEPAM. [Concomitant]
     Active Substance: CLONAZEPAM
     Indication: SEDATION
     Dosage: 1 MILLIGRAM, QH
  7. CLONAZEPAM. [Concomitant]
     Active Substance: CLONAZEPAM
     Dosage: UNK
     Route: 016
  8. PERGOLIDE [Suspect]
     Active Substance: PERGOLIDE
     Indication: PARKINSON^S DISEASE PSYCHOSIS
     Dosage: 0.75 MILLIGRAM
  9. CLOZAPINE. [Suspect]
     Active Substance: CLOZAPINE
     Indication: PARKINSON^S DISEASE
     Dosage: 75 MILLIGRAM
  10. ROPINIROLE. [Suspect]
     Active Substance: ROPINIROLE
     Indication: PARKINSON^S DISEASE
     Dosage: 9 MILLIGRAM
  11. ELDEPRYL [Suspect]
     Active Substance: SELEGILINE HYDROCHLORIDE
     Indication: PARKINSON^S DISEASE
     Dosage: 10 MILLIGRAM
  12. REMERON [Suspect]
     Active Substance: MIRTAZAPINE
     Dosage: UNK
     Route: 048
  13. QUETIAPINE APOTEX [Suspect]
     Active Substance: QUETIAPINE
     Indication: PARKINSON^S DISEASE
  14. CLOZAPINE. [Suspect]
     Active Substance: CLOZAPINE
     Indication: PARKINSON^S DISEASE PSYCHOSIS
  15. RIVASTIGMINE. [Suspect]
     Active Substance: RIVASTIGMINE
     Indication: PARKINSON^S DISEASE PSYCHOSIS
     Dosage: 14.1 MILLIGRAM
     Route: 062
  16. QUETIAPINE APOTEX [Suspect]
     Active Substance: QUETIAPINE
     Indication: PARKINSON^S DISEASE PSYCHOSIS
     Dosage: 400 MILLIGRAM
  17. RIVASTIGMINE. [Suspect]
     Active Substance: RIVASTIGMINE
     Dosage: 14.1 MILLIGRAM
     Route: 062
  18. MADOPAR [Suspect]
     Active Substance: BENSERAZIDE HYDROCHLORIDE\LEVODOPA
     Dosage: 125 MILLIGRAM
  19. CARBIDOPA, ENTACAPONE, LEVODOPA [Suspect]
     Active Substance: CARBIDOPA\ENTACAPONE\LEVODOPA
     Indication: PARKINSON^S DISEASE

REACTIONS (11)
  - Psychotic disorder [Recovered/Resolved]
  - Drug ineffective [Unknown]
  - Parkinson^s disease psychosis [Recovering/Resolving]
  - Condition aggravated [Unknown]
  - Insomnia [Recovered/Resolved]
  - Hypersomnia [Recovered/Resolved]
  - Product use in unapproved indication [Unknown]
  - Screaming [Unknown]
  - Feeling abnormal [Unknown]
  - Hallucination, visual [Recovering/Resolving]
  - Anxiety [Unknown]
